FAERS Safety Report 5105184-8 (Version None)
Quarter: 2006Q3

REPORT INFORMATION
  Report Type: 
  Country: None (occurrence: None)
  Receive Date: 20060911
  Receipt Date: 20060825
  Transmission Date: 20061208
  Serious: Yes (Other)
  Sender: FDA-Public Use
  Company Number: US-2006-018984

PATIENT
  Age: 48 Year
  Sex: Female
  Weight: 90.7 kg

DRUGS (4)
  1. BETASERON [Suspect]
     Indication: RELAPSING-REMITTING MULTIPLE SCLEROSIS
     Dosage: 9.6 MIU, EVERY 2D, SUBCUTANEOUS
     Route: 058
     Dates: start: 19910101
  2. TRIAMTERENE [Concomitant]
  3. LEVOTHYROXINE SODIUM [Concomitant]
  4. BACLOFEN [Concomitant]

REACTIONS (3)
  - ABDOMINAL PAIN [None]
  - BACK PAIN [None]
  - HEPATIC LESION [None]
